FAERS Safety Report 21812540 (Version 2)
Quarter: 2023Q2

REPORT INFORMATION
  Report Type: Spontaneous
  Country: US (occurrence: US)
  Receive Date: 20230103
  Receipt Date: 20230413
  Transmission Date: 20230721
  Serious: Yes (Other)
  Sender: FDA-Public Use
  Company Number: US-ALLERGAN-2242533US

PATIENT
  Sex: Male

DRUGS (1)
  1. VIIBRYD [Suspect]
     Active Substance: VILAZODONE HYDROCHLORIDE
     Indication: Mental disorder
     Dosage: 20 MG, QD
     Route: 048

REACTIONS (4)
  - Throat lesion [Unknown]
  - COVID-19 [Unknown]
  - Dental operation [Unknown]
  - Off label use [Unknown]
